FAERS Safety Report 12636630 (Version 4)
Quarter: 2017Q1

REPORT INFORMATION
  Report Type: Spontaneous
  Country: US (occurrence: US)
  Receive Date: 20160809
  Receipt Date: 20170119
  Transmission Date: 20170428
  Serious: Yes (Other)
  Sender: FDA-Public Use
  Company Number: US-PFIZER INC-2016377584

PATIENT
  Age: 59 Year
  Sex: Female

DRUGS (1)
  1. RELPAX [Suspect]
     Active Substance: ELETRIPTAN HYDROBROMIDE
     Indication: MIGRAINE
     Dosage: 40 MG, AS NEEDED

REACTIONS (5)
  - Activities of daily living impaired [Recovered/Resolved]
  - Bedridden [Recovered/Resolved]
  - Poisoning [Unknown]
  - Incoherent [Recovered/Resolved]
  - Agitation [Not Recovered/Not Resolved]
